FAERS Safety Report 11969556 (Version 1)
Quarter: 2016Q1

REPORT INFORMATION
  Report Type: Spontaneous
  Country: US (occurrence: None)
  Receive Date: 20160126
  Receipt Date: 20160126
  Transmission Date: 20160526
  Serious: Yes (Hospitalization)
  Sender: FDA-Public Use
  Company Number: None

PATIENT
  Age: 55 Year
  Sex: Female

DRUGS (2)
  1. TRETINOIN 10 MG TABS; 22.5 MG/M2/D; D 1-7 + 15-21 [Suspect]
     Active Substance: TRETINOIN
     Indication: MYELOPROLIFERATIVE NEOPLASM
     Route: 048
     Dates: start: 20151118, end: 201601
  2. TRETINOIN 10 MG TABS; 22.5 MG/M2/D; D 1-7 + 15-21 [Suspect]
     Active Substance: TRETINOIN
     Indication: ACUTE LEUKAEMIA
     Route: 048
     Dates: start: 20151118, end: 201601

REACTIONS (1)
  - Coma [None]

NARRATIVE: CASE EVENT DATE: 201601
